FAERS Safety Report 14825608 (Version 2)
Quarter: 2018Q3

REPORT INFORMATION
  Report Type: Report from Study
  Country: US (occurrence: US)
  Receive Date: 20180430
  Receipt Date: 20180928
  Transmission Date: 20181010
  Serious: Yes (Other)
  Sender: FDA-Public Use
  Company Number: US-ROCHE-2006642

PATIENT
  Age: 16 Year
  Sex: Female
  Weight: 78 kg

DRUGS (15)
  1. DDAVP [Concomitant]
     Active Substance: DESMOPRESSIN ACETATE
     Dosage: 2 TAB BID; ONGOING: YES
     Route: 048
  2. ADVIL [Concomitant]
     Active Substance: IBUPROFEN
  3. NUTROPIN AQ [Suspect]
     Active Substance: SOMATROPIN
     Indication: HYPOPITUITARISM
  4. DDAVP [Concomitant]
     Active Substance: DESMOPRESSIN ACETATE
     Indication: DIABETES INSIPIDUS
     Dosage: EVERY EVENING
     Route: 065
  5. DESOGEN (UNITED STATES) [Concomitant]
     Dosage: 0.15?30 MCG
     Route: 048
  6. HYDROCORTISONE SODIUM SUCCINATE [Concomitant]
     Active Substance: HYDROCORTISONE SODIUM SUCCINATE
     Route: 030
  7. DESONIDE. [Concomitant]
     Active Substance: DESONIDE
     Dosage: APPLY TO AFFECTED AREA TWICE A DAY
     Route: 065
  8. DDAVP [Concomitant]
     Active Substance: DESMOPRESSIN ACETATE
     Dosage: QAM
     Route: 048
  9. LEVOTHYROXINE. [Concomitant]
     Active Substance: LEVOTHYROXINE
     Dosage: 75 MCG
     Route: 065
  10. NUTROPIN AQ [Suspect]
     Active Substance: SOMATROPIN
     Indication: GROWTH HORMONE DEFICIENCY
     Dosage: ONGOING:YES
     Route: 058
  11. HYDROCORTISONE. [Concomitant]
     Active Substance: HYDROCORTISONE
     Route: 048
  12. HYDROCORTISONE. [Concomitant]
     Active Substance: HYDROCORTISONE
     Route: 028
  13. INSULIN [Concomitant]
     Active Substance: INSULIN NOS
  14. SYNTHROID [Concomitant]
     Active Substance: LEVOTHYROXINE SODIUM
     Indication: HYPOTHYROIDISM
     Route: 048
  15. VENTOLIN HFA [Concomitant]
     Active Substance: ALBUTEROL SULFATE
     Dosage: 2 PUFFS EVERY 4 HOURS
     Route: 055

REACTIONS (14)
  - Seasonal allergy [Unknown]
  - Anxiety [Unknown]
  - Headache [Unknown]
  - Joint injury [Recovered/Resolved]
  - Acne [Unknown]
  - Fall [Unknown]
  - Eczema [Unknown]
  - Blindness [Unknown]
  - Visual impairment [Unknown]
  - Dermatillomania [Unknown]
  - Concussion [Unknown]
  - Weight increased [Unknown]
  - Fatigue [Unknown]
  - Central obesity [Unknown]

NARRATIVE: CASE EVENT DATE: 201703
